FAERS Safety Report 20487212 (Version 2)
Quarter: 2022Q1

REPORT INFORMATION
  Report Type: Spontaneous
  Country: US (occurrence: US)
  Receive Date: 20220217
  Receipt Date: 20220221
  Transmission Date: 20220423
  Serious: Yes (Other)
  Sender: FDA-Public Use
  Company Number: US-CELGENE-USA-20220204200

PATIENT
  Sex: Male
  Weight: 68 kg

DRUGS (1)
  1. ONUREG [Suspect]
     Active Substance: AZACITIDINE
     Indication: Myelodysplastic syndrome
     Dosage: 300 MILLIGRAM
     Route: 048

REACTIONS (2)
  - Haemorrhage [Recovered/Resolved]
  - Platelet count decreased [Not Recovered/Not Resolved]
